FAERS Safety Report 4647521-4 (Version None)
Quarter: 2005Q2

REPORT INFORMATION
  Report Type: 
  Country: None (occurrence: None)
  Receive Date: 20050426
  Receipt Date: 20050418
  Transmission Date: 20051028
  Serious: No
  Sender: FDA-Public Use
  Company Number: 05H-062-0297899-00

PATIENT
  Age: 40 Year
  Sex: Male

DRUGS (2)
  1. EPINEPHRINE [Suspect]
     Indication: RESUSCITATION
  2. SODIUM BICARBONATE [Suspect]
     Indication: RESUSCITATION

REACTIONS (4)
  - EXTRAVASATION [None]
  - INFECTION [None]
  - INTRACRANIAL INJURY [None]
  - SKIN NECROSIS [None]
